FAERS Safety Report 8725463 (Version 2)
Quarter: 2012Q4

REPORT INFORMATION
  Report Type: 
  Country: US (occurrence: US)
  Receive Date: 20120815
  Receipt Date: 20120918
  Transmission Date: 20130627
  Serious: No
  Sender: FDA-Public Use
  Company Number: US-ASTRAZENECA-2012SE44642

PATIENT
  Age: 69 Year
  Sex: Female
  Weight: 54.4 kg

DRUGS (8)
  1. SYMBICORT [Suspect]
     Indication: CHRONIC OBSTRUCTIVE PULMONARY DISEASE
     Dosage: 160/4.5 2 PUFFS BID
     Route: 055
     Dates: start: 20120616
  2. BACTRIM [Concomitant]
  3. WARFARIN [Concomitant]
  4. ATIVAN [Concomitant]
  5. VICODIN [Concomitant]
     Dosage: 5-500
  6. HYDROCODONE CHLORPHENIRAM [Concomitant]
  7. OMEPRAZOLE [Concomitant]
  8. HCTZ [Concomitant]

REACTIONS (2)
  - Chest pain [Unknown]
  - Drug dose omission [Unknown]
